FAERS Safety Report 6189898-7 (Version None)
Quarter: 2009Q2

REPORT INFORMATION
  Report Type: 
  Country: None (occurrence: None)
  Receive Date: 20090514
  Receipt Date: 20090504
  Transmission Date: 20091009
  Serious: Yes (Other)
  Sender: FDA-Public Use
  Company Number: US-AMGEN-QUU345741

PATIENT
  Sex: Male
  Weight: 3.6 kg

DRUGS (7)
  1. ENBREL [Suspect]
     Indication: PSORIATIC ARTHROPATHY
     Route: 064
     Dates: start: 20030201
  2. ENBREL [Suspect]
     Indication: PSORIASIS
  3. NABUMETONE [Concomitant]
     Route: 064
     Dates: end: 20070301
  4. PREVACID [Concomitant]
     Route: 064
     Dates: end: 20070301
  5. VITAMIN TAB [Concomitant]
     Route: 064
     Dates: start: 20070301
  6. TYLENOL [Concomitant]
     Route: 064
  7. MOMETASONE FUROATE [Concomitant]
     Route: 064

REACTIONS (2)
  - CATARACT CONGENITAL [None]
  - PILONIDAL CYST CONGENITAL [None]
